FAERS Safety Report 4777250-8 (Version None)
Quarter: 2005Q3

REPORT INFORMATION
  Report Type: 
  Country: None (occurrence: None)
  Receive Date: 20050922
  Receipt Date: 20050922
  Transmission Date: 20060218
  Serious: Yes (Hospitalization)
  Sender: FDA-Public Use
  Company Number: None

PATIENT
  Sex: Male
  Weight: 82.3279 kg

DRUGS (10)
  1. GEMCITABINE    100MG/ML      LILLY [Suspect]
     Indication: PANCREATIC CARCINOMA
     Dosage: 1000MG/M2   DAY 1 + 15   IV DRIP
     Route: 041
     Dates: start: 20050623, end: 20050818
  2. CISPLATIN [Suspect]
     Indication: PANCREATIC CARCINOMA
     Dosage: 20MG/M2    DAY 1 + 15    IV DRIP
     Route: 041
     Dates: start: 20050623, end: 20050818
  3. LANTUS [Concomitant]
  4. AMARYL [Concomitant]
  5. METFORMIN [Concomitant]
  6. FOLTX [Concomitant]
  7. BACLOFEN [Concomitant]
  8. LIPITOR [Concomitant]
  9. MORPHINE [Concomitant]
  10. ATENOLOL [Concomitant]

REACTIONS (2)
  - NAUSEA [None]
  - VOMITING [None]
